FAERS Safety Report 6999314-0 (Version None)
Quarter: 2010Q3

REPORT INFORMATION
  Report Type: 
  Country: None (occurrence: None)
  Receive Date: 20100920
  Receipt Date: 20100323
  Transmission Date: 20110219
  Serious: No
  Sender: FDA-Public Use
  Company Number: US-ASTRAZENECA-2009UW20464

PATIENT
  Age: 43 Year
  Sex: Female
  Weight: 113.4 kg

DRUGS (12)
  1. SEROQUEL [Suspect]
     Indication: SCHIZOAFFECTIVE DISORDER
     Route: 048
     Dates: start: 20050101, end: 20080101
  2. SEROQUEL [Suspect]
     Indication: BIPOLAR I DISORDER
     Route: 048
     Dates: start: 20050101, end: 20080101
  3. SEROQUEL [Suspect]
     Indication: BIPOLAR DISORDER
     Route: 048
     Dates: start: 20050101, end: 20080101
  4. GEODON [Concomitant]
     Indication: BIPOLAR DISORDER
     Dates: start: 20080101
  5. GEODON [Concomitant]
     Indication: SCHIZOAFFECTIVE DISORDER
     Dates: start: 20080101
  6. LAMICTAL [Concomitant]
     Indication: BIPOLAR DISORDER
  7. LAMICTAL [Concomitant]
     Indication: SCHIZOAFFECTIVE DISORDER
  8. RESTORIL [Concomitant]
     Indication: BIPOLAR DISORDER
  9. RESTORIL [Concomitant]
     Indication: SCHIZOAFFECTIVE DISORDER
  10. WELLBUTRIN [Concomitant]
     Indication: DEPRESSION
     Dates: start: 20050101
  11. LORAZEPAM [Concomitant]
     Indication: DEPRESSION
  12. HALDOL [Concomitant]
     Dates: start: 20060101

REACTIONS (7)
  - BLOOD CHOLESTEROL INCREASED [None]
  - BLOOD GLUCOSE INCREASED [None]
  - BLOOD TRIGLYCERIDES INCREASED [None]
  - HYPERLIPIDAEMIA [None]
  - OBESITY [None]
  - TYPE 2 DIABETES MELLITUS [None]
  - WEIGHT INCREASED [None]
